FAERS Safety Report 17867486 (Version 1)
Quarter: 2020Q2

REPORT INFORMATION
  Report Type: Other
  Country: PL (occurrence: PL)
  Receive Date: 20200605
  Receipt Date: 20200605
  Transmission Date: 20200714
  Serious: Yes (Hospitalization)
  Sender: FDA-Public Use
  Company Number: PL-EMD SERONO-E2B_90077736

PATIENT
  Age: 39 Year
  Sex: Male

DRUGS (1)
  1. METFORMIN [Suspect]
     Active Substance: METFORMIN HYDROCHLORIDE
     Indication: DIABETES MELLITUS
     Route: 065

REACTIONS (7)
  - Left ventricular hypertrophy [Unknown]
  - Psychomotor hyperactivity [Unknown]
  - MELAS syndrome [Unknown]
  - Cardiomyopathy [Unknown]
  - Oedema [Unknown]
  - Speech disorder [Unknown]
  - Aphasia [Unknown]
